FAERS Safety Report 16854090 (Version 1)
Quarter: 2019Q3

REPORT INFORMATION
  Report Type: Spontaneous
  Country: US (occurrence: US)
  Receive Date: 20190926
  Receipt Date: 20190926
  Transmission Date: 20191005
  Serious: No
  Sender: FDA-Public Use
  Company Number: US-GLAXOSMITHKLINE-US2019170884

PATIENT
  Sex: Female

DRUGS (1)
  1. BREO ELLIPTA [Suspect]
     Active Substance: FLUTICASONE FUROATE\VILANTEROL TRIFENATATE
     Indication: PULMONARY SARCOIDOSIS
     Dosage: UNK UNK, 1D
     Route: 065
     Dates: start: 2016

REACTIONS (5)
  - Dysphonia [Unknown]
  - Product label confusion [Unknown]
  - Dyspnoea [Unknown]
  - Condition aggravated [Unknown]
  - Product use in unapproved indication [Unknown]
